FAERS Safety Report 16917590 (Version 1)
Quarter: 2019Q4

REPORT INFORMATION
  Report Type: Spontaneous
  Country: FR (occurrence: FR)
  Receive Date: 20191015
  Receipt Date: 20191015
  Transmission Date: 20200122
  Serious: Yes (Other)
  Sender: FDA-Public Use
  Company Number: FR-ADVANZ PHARMA-201910001090

PATIENT

DRUGS (2)
  1. ZONISAMIDE. [Suspect]
     Active Substance: ZONISAMIDE
     Dosage: 400 MG, QD, CAPSULE
     Route: 048
     Dates: start: 2019
  2. ZONISAMIDE. [Suspect]
     Active Substance: ZONISAMIDE
     Indication: EPILEPSY
     Dosage: 300 MG, QD, CAPSULE
     Route: 048
     Dates: start: 2016, end: 2019

REACTIONS (3)
  - Breast cancer [Not Recovered/Not Resolved]
  - Anxiety [Unknown]
  - Epilepsy [Recovered/Resolved]

NARRATIVE: CASE EVENT DATE: 2019
